FAERS Safety Report 8786364 (Version 2)
Quarter: 2012Q4

REPORT INFORMATION
  Report Type: 
  Country: US (occurrence: US)
  Receive Date: 20120914
  Receipt Date: 20121107
  Transmission Date: 20130627
  Serious: Yes (Other)
  Sender: FDA-Public Use
  Company Number: US-PFIZER INC-2012225520

PATIENT
  Sex: Female

DRUGS (2)
  1. NEURONTIN [Suspect]
     Dosage: UNK
  2. NEURONTIN [Suspect]
     Dosage: UNK

REACTIONS (9)
  - Fall [Unknown]
  - Balance disorder [Unknown]
  - Hand fracture [Unknown]
  - Joint injury [Unknown]
  - Poor peripheral circulation [Unknown]
  - Hernia [Unknown]
  - Nodule [Unknown]
  - Joint effusion [Unknown]
  - Hypoaesthesia [Unknown]
